FAERS Safety Report 4606494-0 (Version None)
Quarter: 2005Q2

REPORT INFORMATION
  Report Type: 
  Country: None (occurrence: None)
  Receive Date: 20050216
  Receipt Date: 20040203
  Transmission Date: 20051028
  Serious: Yes (Disabling)
  Sender: FDA-Public Use
  Company Number: 200310464BBE

PATIENT
  Age: 51 Year
  Sex: Female

DRUGS (3)
  1. PROLASTIN [Suspect]
     Dosage: SEE IMAGE
     Route: 042
     Dates: start: 20031211
  2. PROLASTIN [Suspect]
     Dosage: SEE IMAGE
     Route: 042
     Dates: start: 20031217
  3. PROLASTIN [Suspect]

REACTIONS (1)
  - INJECTION SITE IRRITATION [None]
